FAERS Safety Report 21892279 (Version 1)
Quarter: 2023Q1

REPORT INFORMATION
  Report Type: Spontaneous
  Country: US (occurrence: US)
  Receive Date: 20230120
  Receipt Date: 20230120
  Transmission Date: 20230418
  Serious: Yes (Other)
  Sender: FDA-Public Use
  Company Number: US-JAZZ-2022-US-036356

PATIENT
  Sex: Female

DRUGS (1)
  1. XYREM [Suspect]
     Active Substance: SODIUM OXYBATE
     Indication: Narcolepsy
     Dosage: DIVIDED AS 3 GM + 2.75 GM NIGHTLY
     Route: 048
     Dates: start: 2021

REACTIONS (3)
  - Weight decreased [Recovering/Resolving]
  - Decreased appetite [Unknown]
  - Nausea [Recovered/Resolved]
